FAERS Safety Report 5707380-5 (Version None)
Quarter: 2008Q2

REPORT INFORMATION
  Report Type: 
  Country: None (occurrence: None)
  Receive Date: 20080416
  Receipt Date: 20080318
  Transmission Date: 20081010
  Serious: Yes (Death, Other)
  Sender: FDA-Public Use
  Company Number: GB-BAYER-200816516GPV

PATIENT

DRUGS (2)
  1. ASPIRIN [Suspect]
     Indication: COLORECTAL CANCER
     Dosage: TOTAL DAILY DOSE: 300  MG
  2. FOLATE ACID [Concomitant]
     Indication: COLORECTAL CANCER
     Dosage: TOTAL DAILY DOSE: 0.5 MG
     Route: 065

REACTIONS (10)
  - ANGIOPATHY [None]
  - CEREBROVASCULAR ACCIDENT [None]
  - DEATH [None]
  - DYSPEPSIA [None]
  - LOWER GASTROINTESTINAL HAEMORRHAGE [None]
  - MYOCARDIAL INFARCTION [None]
  - NEOPLASM MALIGNANT [None]
  - PEPTIC ULCER [None]
  - SUBARACHNOID HAEMORRHAGE [None]
  - UPPER GASTROINTESTINAL HAEMORRHAGE [None]
